FAERS Safety Report 9501782 (Version 2)
Quarter: 2013Q3

REPORT INFORMATION
  Report Type: Spontaneous
  Country: US (occurrence: US)
  Receive Date: 20130905
  Receipt Date: 20130918
  Transmission Date: 20140515
  Serious: No
  Sender: FDA-Public Use
  Company Number: US-009507513-1308USA013548

PATIENT
  Sex: Female

DRUGS (1)
  1. NEXPLANON [Suspect]
     Indication: CONTRACEPTION
     Dosage: UNK
     Route: 059
     Dates: start: 20130718, end: 20130826

REACTIONS (5)
  - Exercise tolerance decreased [Unknown]
  - Aggression [Unknown]
  - Abnormal behaviour [Unknown]
  - Depressed mood [Unknown]
  - Fatigue [Unknown]
